FAERS Safety Report 9442401 (Version 2)
Quarter: 2013Q3

REPORT INFORMATION
  Report Type: Report from Study
  Country: US (occurrence: US)
  Receive Date: 20130806
  Receipt Date: 20130809
  Transmission Date: 20140515
  Serious: Yes (Hospitalization, Other)
  Sender: FDA-Public Use
  Company Number: US-SANOFI-AVENTIS-2013SA076951

PATIENT
  Sex: 0

DRUGS (8)
  1. OXALIPLATIN [Suspect]
     Indication: COLON CANCER
     Route: 065
  2. IRINOTECAN [Suspect]
     Indication: COLON CANCER
     Route: 065
  3. FOLINIC ACID [Suspect]
     Indication: COLON CANCER
     Route: 065
  4. FLUOROURACIL [Suspect]
     Indication: COLON CANCER
     Route: 065
  5. CAPECITABINE [Suspect]
     Indication: COLON CANCER
     Route: 065
  6. BEVACIZUMAB [Suspect]
     Indication: COLON CANCER
     Route: 065
  7. ATIVAN [Suspect]
     Indication: PRODUCT USED FOR UNKNOWN INDICATION
     Route: 065
  8. OXYCONTIN [Suspect]
     Indication: PRODUCT USED FOR UNKNOWN INDICATION
     Route: 065

REACTIONS (1)
  - Metabolic encephalopathy [Unknown]
